FAERS Safety Report 8589891-0 (Version None)
Quarter: 2012Q3

REPORT INFORMATION
  Report Type: 
  Country: None (occurrence: None)
  Receive Date: 20120813
  Receipt Date: 20120806
  Transmission Date: 20120928
  Serious: Yes (Death, Hospitalization, Other)
  Sender: FDA-Public Use
  Company Number: PHHY2010MX86231

PATIENT
  Sex: Female

DRUGS (9)
  1. SEROQUEL [Concomitant]
     Indication: DEMENTIA
     Dosage: 300 MG DAILY
     Route: 048
     Dates: start: 20101001
  2. ATEMPERATOR [Concomitant]
     Indication: AGITATION
     Dosage: 1 1/2  TAB (400 MG) DAILY
     Route: 048
     Dates: start: 20101001
  3. MELOXICAM [Concomitant]
     Indication: ARTHRALGIA
     Dosage: 1 TAB (15 MG) DAILY
     Route: 048
     Dates: start: 20101001
  4. EXELON [Suspect]
     Indication: SENILE DEMENTIA
     Dosage: 4.6 MG/24 H
     Route: 062
     Dates: start: 20101001
  5. EXELON [Suspect]
     Dosage: 9.5 MG/24 H
     Route: 062
     Dates: start: 20110601
  6. DIOVAN HCT [Suspect]
     Indication: HYPERTENSION
     Dosage: 1 TAB (80 MG) DAILY
     Route: 048
     Dates: start: 20100201, end: 20120705
  7. ANGIOTROFIN (DILTIAZEM) [Concomitant]
     Indication: HYPERTENSION
     Dosage: 2 TAB (30 MG) DAILY
     Route: 048
     Dates: start: 20101001
  8. COUMADIN [Concomitant]
     Indication: HYPERTENSION
     Dosage: 1/2 TAB (5 MG) DAILY
     Route: 048
     Dates: start: 20101001
  9. NITROGLYCERIN [Concomitant]
     Route: 062

REACTIONS (12)
  - PULMONARY CONGESTION [None]
  - ABNORMAL BEHAVIOUR [None]
  - HAEMATEMESIS [None]
  - DYSPNOEA [None]
  - SKIN IRRITATION [None]
  - UPPER GASTROINTESTINAL HAEMORRHAGE [None]
  - PRURITUS [None]
  - ERYTHEMA [None]
  - LOBAR PNEUMONIA [None]
  - GASTRITIS EROSIVE [None]
  - HALLUCINATION [None]
  - MALAISE [None]
